FAERS Safety Report 22092836 (Version 1)
Quarter: 2023Q1

REPORT INFORMATION
  Report Type: Spontaneous
  Country: FR (occurrence: FR)
  Receive Date: 20230314
  Receipt Date: 20230314
  Transmission Date: 20230418
  Serious: Yes (Life-Threatening, Other)
  Sender: FDA-Public Use
  Company Number: FR-AFSSAPS-NC2023000239

PATIENT
  Age: 65 Year
  Sex: Male
  Weight: 74 kg

DRUGS (7)
  1. AMOXICILLIN [Suspect]
     Active Substance: AMOXICILLIN
     Indication: Postoperative wound infection
     Dosage: 9 GRAM, ONCE A DAY
     Route: 048
     Dates: start: 20230104, end: 20230106
  2. AMOXICILLIN [Suspect]
     Active Substance: AMOXICILLIN
     Dosage: 1.5 GRAM, ONCE A DAY
     Route: 048
     Dates: start: 20230111, end: 20230111
  3. AMOXICILLIN [Suspect]
     Active Substance: AMOXICILLIN
     Dosage: 9 GRAM, ONCE A DAY
     Route: 048
     Dates: start: 20230110, end: 20230110
  4. CIPROFLOXACIN [Suspect]
     Active Substance: CIPROFLOXACIN
     Indication: Postoperative wound infection
     Dosage: 750 MILLIGRAM, ONCE A DAY
     Route: 048
     Dates: start: 20230111, end: 20230111
  5. CIPROFLOXACIN [Suspect]
     Active Substance: CIPROFLOXACIN
     Dosage: 1500 MILLIGRAM, ONCE A DAY
     Route: 048
     Dates: start: 20230104, end: 20230110
  6. CIPROFLOXACIN [Suspect]
     Active Substance: CIPROFLOXACIN
     Indication: Postoperative wound infection
     Dosage: 1200 MILLIGRAM, ONCE A DAY
     Route: 042
     Dates: start: 20221214, end: 20230104
  7. AMOXICILLIN [Suspect]
     Active Substance: AMOXICILLIN
     Indication: Postoperative wound infection
     Dosage: 9 GRAM, ONCE A DAY
     Route: 042
     Dates: start: 20230106, end: 20230109

REACTIONS (1)
  - Acute kidney injury [Recovered/Resolved]

NARRATIVE: CASE EVENT DATE: 20230109
